FAERS Safety Report 26156484 (Version 1)
Quarter: 2025Q4

REPORT INFORMATION
  Report Type: Other
  Country: EU (occurrence: EU)
  Receive Date: 20251215
  Receipt Date: 20251215
  Transmission Date: 20260117
  Serious: Yes (Hospitalization)
  Sender: ZYDUS PHARM
  Company Number: None

PATIENT

DRUGS (11)
  1. AMLODIPINE [Suspect]
     Active Substance: AMLODIPINE BESYLATE
     Indication: Hypertension
     Dosage: 5 MILLIGRAM, QD
     Route: 048
     Dates: start: 20251003, end: 20251106
  2. URAPIDIL [Suspect]
     Active Substance: URAPIDIL
     Indication: Hypertension
     Dosage: 60 MILLIGRAM, QD
     Route: 048
     Dates: start: 20250925, end: 20250929
  3. URAPIDIL [Suspect]
     Active Substance: URAPIDIL
     Dosage: 90 MILLIGRAM, QD
     Route: 048
     Dates: start: 20250930, end: 20251003
  4. URAPIDIL [Suspect]
     Active Substance: URAPIDIL
     Dosage: 60 MILLIGRAM, QD
     Route: 048
     Dates: start: 20251004, end: 20251016
  5. URAPIDIL [Suspect]
     Active Substance: URAPIDIL
     Dosage: 90 MILLIGRAM, QD
     Route: 048
     Dates: start: 20251017, end: 20251022
  6. URAPIDIL [Suspect]
     Active Substance: URAPIDIL
     Dosage: 60 MILLIGRAM, QD
     Route: 048
     Dates: start: 20251023, end: 20251112
  7. ALLOPURINOL [Concomitant]
     Active Substance: ALLOPURINOL
     Indication: Product used for unknown indication
     Dosage: UNK
     Route: 065
  8. LANSOPRAZOLE [Concomitant]
     Active Substance: LANSOPRAZOLE
     Indication: Product used for unknown indication
     Dosage: UNK
     Route: 065
  9. LEVOFLOXACIN [Concomitant]
     Active Substance: LEVOFLOXACIN
     Indication: Product used for unknown indication
     Dosage: UNK
     Route: 065
  10. ELIQUIS [Concomitant]
     Active Substance: APIXABAN
     Indication: Product used for unknown indication
     Dosage: UNK
     Route: 065
  11. KARDEGIC [Concomitant]
     Active Substance: ASPIRIN DL-LYSINE
     Indication: Product used for unknown indication
     Dosage: UNK
     Route: 065

REACTIONS (2)
  - Fall [Recovered/Resolved]
  - Orthostatic hypotension [Recovered/Resolved]

NARRATIVE: CASE EVENT DATE: 20251021
